FAERS Safety Report 7201446-9 (Version None)
Quarter: 2010Q4

REPORT INFORMATION
  Report Type: 
  Country: None (occurrence: None)
  Receive Date: 20101229
  Receipt Date: 20101214
  Transmission Date: 20110411
  Serious: Yes (Other)
  Sender: FDA-Public Use
  Company Number: US-PURDUE-USA-2010-0049036

PATIENT
  Sex: Female

DRUGS (3)
  1. OXYCONTIN [Suspect]
     Indication: MULTIPLE SCLEROSIS
     Dosage: 40 MG, TID
     Dates: start: 20100908
  2. DONABALL [Concomitant]
     Indication: ABDOMINAL DISCOMFORT
  3. PERCOCET [Concomitant]
     Indication: PRODUCT USED FOR UNKNOWN INDICATION
     Dosage: 15 MG, Q3H

REACTIONS (10)
  - ABDOMINAL DISTENSION [None]
  - ABDOMINAL PAIN UPPER [None]
  - DRUG INEFFECTIVE [None]
  - LARYNGITIS [None]
  - LUNG NEOPLASM [None]
  - NAUSEA [None]
  - SENSATION OF HEAVINESS [None]
  - TREMOR [None]
  - VIITH NERVE PARALYSIS [None]
  - WEIGHT DECREASED [None]
